FAERS Safety Report 9292190 (Version 1)
Quarter: 2012Q4

REPORT INFORMATION
  Report Type: Spontaneous
  Country: US (occurrence: None)
  Receive Date: 20121015
  Receipt Date: 20121015
  Transmission Date: 20130627
  Serious: Yes (Death)
  Sender: FDA-Public Use
  Company Number: UTC-022886

PATIENT
  Age: 64 Year
  Sex: Female

DRUGS (3)
  1. REMODULIN [Suspect]
     Indication: PULMONARY ARTERIAL HYPERTENSION
     Dosage: (1 in 1 min)
     Route: 058
     Dates: start: 20120801
  2. REMODULIN [Suspect]
     Indication: PULMONARY ARTERIAL HYPERTENSION
     Dosage: (0.11 ug/kg, 1 in 1 min)
     Route: 058
     Dates: start: 20120830
  3. LETAIRIS [Suspect]
     Indication: PORTOPULMONARY HYPERTENSION
     Dosage: (10 mg, 1 in 1 D)
     Route: 048
     Dates: start: 20120329, end: 20120910

REACTIONS (5)
  - Dyspnoea [None]
  - Diarrhoea [None]
  - Swelling [None]
  - Nausea [None]
  - Muscle spasms [None]
